FAERS Safety Report 8259638-6 (Version None)
Quarter: 2012Q2

REPORT INFORMATION
  Report Type: 
  Country: None (occurrence: None)
  Receive Date: 20120404
  Receipt Date: 20120330
  Transmission Date: 20120825
  Serious: Yes (Life-Threatening, Hospitalization, Other)
  Sender: FDA-Public Use
  Company Number: PHBS2010DE00558

PATIENT
  Sex: Male
  Weight: 73 kg

DRUGS (15)
  1. ANTIADRENERGIC AGENTS, CENTRALLY ACTING [Concomitant]
     Dates: end: 20090513
  2. ACTRAPHANE HM [Concomitant]
     Indication: TYPE 2 DIABETES MELLITUS
     Dosage: 12 IU, PER DAY
     Route: 058
  3. NIFEHEXAL [Concomitant]
     Dosage: 10 MG, PER DAY
     Dates: start: 20070925
  4. PROTAPHAN [Concomitant]
     Dates: start: 20060111
  5. NOVORAPID [Concomitant]
     Indication: TYPE 2 DIABETES MELLITUS
     Dosage: 32 IU, PER DAY
     Route: 058
  6. NITRENDIPINE [Concomitant]
     Indication: HYPERTENSION
     Dosage: 20 MG, PER DAY
     Route: 048
     Dates: start: 20070925
  7. METOPROLOL SUCCINATE [Concomitant]
     Indication: HYPERTENSION
     Dosage: 95 MG, PER DAY
     Route: 048
  8. FUROSEMIDE [Concomitant]
     Indication: CARDIAC FAILURE
     Dosage: 125 MG, PER DAY
     Route: 048
     Dates: start: 20090514, end: 20111020
  9. RASILEZ [Suspect]
     Indication: HYPERTENSION
     Route: 048
  10. ANGIOTENSIN II ANTAGONISTS [Concomitant]
     Dates: start: 20090513, end: 20101227
  11. ACE INHIBITORS [Concomitant]
     Dates: start: 20101227
  12. ENALAPRIL MALEATE [Concomitant]
     Indication: HYPERTENSION
     Dosage: 20 MG, PER DAY
     Route: 048
     Dates: end: 20111020
  13. TORSEMIDE [Concomitant]
     Indication: CARDIAC FAILURE
     Dosage: 10 MG, PER DAY
     Route: 048
  14. SIMVASTATIN [Concomitant]
     Indication: HYPERCHOLESTEROLAEMIA
     Dosage: 40 MG, PER DAY
     Route: 048
  15. ASPIRIN [Concomitant]
     Indication: CORONARY ARTERY DISEASE
     Dosage: 100 MG, PER DAY
     Route: 048

REACTIONS (8)
  - BLOOD GLUCOSE INCREASED [None]
  - ACUTE CORONARY SYNDROME [None]
  - METASTATIC NEOPLASM [None]
  - HYPERTENSION [None]
  - PULMONARY OEDEMA [None]
  - C-REACTIVE PROTEIN INCREASED [None]
  - ELECTROCARDIOGRAM QRS COMPLEX PROLONGED [None]
  - GLYCOSYLATED HAEMOGLOBIN INCREASED [None]
